FAERS Safety Report 15577678 (Version 22)
Quarter: 2022Q3

REPORT INFORMATION
  Report Type: Other
  Country: CA (occurrence: CA)
  Receive Date: 20181102
  Receipt Date: 20220808
  Transmission Date: 20221027
  Serious: Yes (Hospitalization, Other)
  Sender: FDA-Public Use
  Company Number: CA-002147023-PHHY2016CA024138

PATIENT
  Age: 57 Year
  Sex: Female
  Weight: 60 kg

DRUGS (30)
  1. XOLAIR [Suspect]
     Active Substance: OMALIZUMAB
     Indication: Chronic spontaneous urticaria
     Dosage: 300 MG, (EVERY 4 WEEKS)
     Route: 058
     Dates: start: 20151123
  2. XOLAIR [Suspect]
     Active Substance: OMALIZUMAB
     Dosage: UNK
     Route: 058
     Dates: start: 20160118
  3. XOLAIR [Suspect]
     Active Substance: OMALIZUMAB
     Dosage: 300 MG, (EVERY 4 WEEKS)
     Route: 058
     Dates: start: 20160310
  4. XOLAIR [Suspect]
     Active Substance: OMALIZUMAB
     Dosage: UNK
     Route: 058
     Dates: start: 20160512
  5. XOLAIR [Suspect]
     Active Substance: OMALIZUMAB
     Dosage: 300 MG, (EVERY 4 WEEKS)
     Route: 058
     Dates: start: 20161027
  6. XOLAIR [Suspect]
     Active Substance: OMALIZUMAB
     Dosage: 300 MG, (EVERY 4 WEEKS)
     Route: 058
     Dates: start: 201611
  7. XOLAIR [Suspect]
     Active Substance: OMALIZUMAB
     Dosage: UNK
     Route: 058
     Dates: start: 20170112
  8. XOLAIR [Suspect]
     Active Substance: OMALIZUMAB
     Dosage: UNK
     Route: 058
     Dates: start: 20170413
  9. XOLAIR [Suspect]
     Active Substance: OMALIZUMAB
     Dosage: 300 MG, (EVERY 4 WEEKS)
     Route: 058
     Dates: start: 20180205
  10. XOLAIR [Suspect]
     Active Substance: OMALIZUMAB
     Dosage: UNK
     Route: 058
     Dates: start: 20180301
  11. XOLAIR [Suspect]
     Active Substance: OMALIZUMAB
     Dosage: 300 MG, (EVERY 4 WEEKS)
     Route: 058
     Dates: start: 20180510
  12. XOLAIR [Suspect]
     Active Substance: OMALIZUMAB
     Dosage: 300 MG, (EVERY 4 WEEKS)
     Route: 058
     Dates: start: 20180731
  13. XOLAIR [Suspect]
     Active Substance: OMALIZUMAB
     Dosage: 300 MG, (EVERY 4 WEEKS)
     Route: 058
     Dates: start: 20180927
  14. XOLAIR [Suspect]
     Active Substance: OMALIZUMAB
     Dosage: 300 MG, (EVERY 4 WEEKS)
     Route: 058
     Dates: start: 20190214
  15. XOLAIR [Suspect]
     Active Substance: OMALIZUMAB
     Dosage: 300 MG, (EVERY 4 WEEKS)
     Route: 058
     Dates: start: 20190411
  16. XOLAIR [Suspect]
     Active Substance: OMALIZUMAB
     Dosage: 300 MG, (EVERY 4 WEEKS)
     Route: 058
     Dates: start: 201906
  17. XOLAIR [Suspect]
     Active Substance: OMALIZUMAB
     Dosage: 300 MG, (EVERY 4 WEEKS)
     Route: 058
     Dates: start: 20191205
  18. XOLAIR [Suspect]
     Active Substance: OMALIZUMAB
     Dosage: 300 MG, (EVERY 4 WEEKS)
     Route: 058
     Dates: start: 20200326
  19. XOLAIR [Suspect]
     Active Substance: OMALIZUMAB
     Dosage: 300 MG, (EVERY 4 WEEKS)
     Route: 058
  20. XOLAIR [Suspect]
     Active Substance: OMALIZUMAB
     Dosage: 300 MG, (EVERY 4 WEEKS)
     Route: 058
     Dates: start: 20210202
  21. XOLAIR [Suspect]
     Active Substance: OMALIZUMAB
     Dosage: 300 MG, (EVERY 4 WEEKS)
     Route: 065
     Dates: start: 202102
  22. XOLAIR [Suspect]
     Active Substance: OMALIZUMAB
     Route: 065
     Dates: start: 20210511
  23. XOLAIR [Suspect]
     Active Substance: OMALIZUMAB
     Dosage: UNK
     Route: 065
  24. XOLAIR [Suspect]
     Active Substance: OMALIZUMAB
     Dosage: 300 MG, (EVERY 4 WEEKS)
     Route: 058
  25. CIPROFLOXACIN [Suspect]
     Active Substance: CIPROFLOXACIN
     Indication: Product used for unknown indication
     Route: 065
  26. ATIVAN [Suspect]
     Active Substance: LORAZEPAM
     Indication: Product used for unknown indication
     Dosage: SWALLOWED 30 ATIVAN TABLETS
     Route: 065
  27. SINGULAIR [Concomitant]
     Active Substance: MONTELUKAST SODIUM
     Indication: Product used for unknown indication
     Route: 065
  28. PENICILLIN G SODIUM [Concomitant]
     Active Substance: PENICILLIN G SODIUM
     Indication: Product used for unknown indication
     Dosage: UNK MG, UNK
     Route: 065
     Dates: start: 20170210
  29. CETIRIZINE HYDROCHLORIDE [Concomitant]
     Active Substance: CETIRIZINE HYDROCHLORIDE
     Indication: Product used for unknown indication
     Dosage: UNK MG, UNK
     Route: 065
     Dates: start: 20170210
  30. BENADRYL [Concomitant]
     Active Substance: DIPHENHYDRAMINE HYDROCHLORIDE
     Indication: Product used for unknown indication
     Dosage: 4 DF (1 TO 4 PILLS)
     Route: 065

REACTIONS (36)
  - Suicide attempt [Unknown]
  - Hypertension [Unknown]
  - Hyperthyroidism [Unknown]
  - Pruritus [Not Recovered/Not Resolved]
  - Erythema [Not Recovered/Not Resolved]
  - Urticaria [Unknown]
  - Crying [Unknown]
  - Heart rate increased [Unknown]
  - Gingival disorder [Unknown]
  - Swelling [Not Recovered/Not Resolved]
  - Disturbance in attention [Unknown]
  - Carcinogenicity [Recovering/Resolving]
  - Muscle mass [Recovering/Resolving]
  - Pain [Unknown]
  - Vomiting [Recovered/Resolved]
  - Sleep disorder [Unknown]
  - Oropharyngeal pain [Unknown]
  - Middle insomnia [Unknown]
  - Influenza [Unknown]
  - Influenza like illness [Unknown]
  - Nausea [Recovered/Resolved]
  - Diarrhoea [Recovering/Resolving]
  - Rash [Unknown]
  - Nasal congestion [Not Recovered/Not Resolved]
  - Pruritus genital [Unknown]
  - Scratch [Unknown]
  - Skin lesion [Unknown]
  - Skin abrasion [Unknown]
  - Genital haemorrhage [Unknown]
  - Discomfort [Unknown]
  - Face oedema [Recovered/Resolved]
  - Hypersensitivity [Recovered/Resolved]
  - Injection site warmth [Recovered/Resolved]
  - Pain in extremity [Unknown]
  - Cough [Unknown]
  - Drug hypersensitivity [Unknown]

NARRATIVE: CASE EVENT DATE: 20160118
